FAERS Safety Report 23611172 (Version 2)
Quarter: 2024Q1

REPORT INFORMATION
  Report Type: Spontaneous
  Country: CA (occurrence: CA)
  Receive Date: 20240308
  Receipt Date: 20240318
  Transmission Date: 20240410
  Serious: Yes (Other)
  Sender: FDA-Public Use
  Company Number: CA-PFIZER INC-PV202400030342

PATIENT
  Age: 62 Year
  Sex: Female

DRUGS (2)
  1. PREMARIN [Suspect]
     Active Substance: ESTROGENS, CONJUGATED
     Indication: Vulvovaginal pain
     Dosage: 1 DF, 1X/DAY (1 APPLICATOR AT BEDTIME)
     Route: 067
     Dates: start: 20240215
  2. PREMARIN [Suspect]
     Active Substance: ESTROGENS, CONJUGATED
     Indication: Hormone therapy

REACTIONS (6)
  - Nipple pain [Recovered/Resolved]
  - Oedema genital [Recovered/Resolved]
  - Device difficult to use [Unknown]
  - Urinary tract infection [Recovered/Resolved]
  - Injury associated with device [Unknown]
  - Device physical property issue [Unknown]

NARRATIVE: CASE EVENT DATE: 20240218
